FAERS Safety Report 5336542-4 (Version None)
Quarter: 2007Q2

REPORT INFORMATION
  Report Type: 
  Country: None (occurrence: None)
  Receive Date: 20070524
  Receipt Date: 20070510
  Transmission Date: 20071010
  Serious: Yes (Death)
  Sender: FDA-Public Use
  Company Number: A-CH2007-15557

PATIENT
  Age: 38 Year
  Sex: Male
  Weight: 56.4 kg

DRUGS (2)
  1. TRACLEER [Suspect]
     Indication: PULMONARY HYPERTENSION
     Dosage: 125 MG, BID, ORAL, 6205 MG, BID, ORAL
     Route: 048
     Dates: start: 20060727, end: 20060826
  2. TRACLEER [Suspect]
     Indication: PULMONARY HYPERTENSION
     Dosage: 125 MG, BID, ORAL, 6205 MG, BID, ORAL
     Route: 048
     Dates: start: 20060827, end: 20070504

REACTIONS (2)
  - RENAL FAILURE CHRONIC [None]
  - SUDDEN DEATH [None]
